FAERS Safety Report 20691049 (Version 2)
Quarter: 2022Q3

REPORT INFORMATION
  Report Type: Spontaneous
  Country: AU (occurrence: AU)
  Receive Date: 20220408
  Receipt Date: 20220711
  Transmission Date: 20221027
  Serious: Yes (Other)
  Sender: FDA-Public Use
  Company Number: AU-BRISTOL-MYERS SQUIBB COMPANY-2022-015887

PATIENT
  Age: 67 Year
  Sex: Male

DRUGS (3)
  1. REVLIMID [Suspect]
     Active Substance: LENALIDOMIDE
     Indication: Plasma cell myeloma
     Dosage: PREVIOUS 10 MG;  FREQ : D1-28
     Route: 065
     Dates: start: 20220216
  2. REVLIMID [Suspect]
     Active Substance: LENALIDOMIDE
     Dosage: DOSE : RECENT 5 MG; FREQ : D1-28
     Route: 065
     Dates: start: 20220328
  3. REVLIMID [Suspect]
     Active Substance: LENALIDOMIDE
     Dosage: DAILY FOR 3 WEEKS AND 2 WEEKS OFF
     Route: 065
     Dates: end: 20220426

REACTIONS (4)
  - Pancytopenia [Unknown]
  - Myelosuppression [Unknown]
  - Pneumonia [Unknown]
  - Off label use [Unknown]
